FAERS Safety Report 11654999 (Version 1)
Quarter: 2015Q4

REPORT INFORMATION
  Report Type: Spontaneous
  Country: PT (occurrence: PT)
  Receive Date: 20151023
  Receipt Date: 20151023
  Transmission Date: 20160304
  Serious: Yes (Other)
  Sender: FDA-Public Use
  Company Number: PT-WATSON-2015-20292

PATIENT
  Age: 42 Year
  Sex: Female

DRUGS (1)
  1. CLINDAMYCIN (UNKNOWN) [Suspect]
     Active Substance: CLINDAMYCIN\CLINDAMYCIN PHOSPHATE
     Indication: DIABETIC FOOT
     Dosage: UNK
     Route: 065

REACTIONS (1)
  - Oesophageal mucosal dissection [Recovering/Resolving]
